FAERS Safety Report 24056360 (Version 1)
Quarter: 2024Q3

REPORT INFORMATION
  Report Type: Report from Study
  Country: US (occurrence: US)
  Receive Date: 20240705
  Receipt Date: 20240705
  Transmission Date: 20241016
  Serious: No
  Sender: ALEXION PHARMACEUTICALS
  Company Number: US-AstraZeneca-CH-00656758A

PATIENT
  Sex: Female

DRUGS (1)
  1. STRENSIQ [Suspect]
     Active Substance: ASFOTASE ALFA
     Indication: Hypophosphatasia
     Dosage: UNK UNK, TIW
     Route: 065

REACTIONS (8)
  - Urinary tract infection [Not Recovered/Not Resolved]
  - Asthenia [Unknown]
  - Pulpless tooth [Unknown]
  - Tooth discolouration [Unknown]
  - Sinusitis [Unknown]
  - Chromaturia [Unknown]
  - Product use complaint [Unknown]
  - Inappropriate schedule of product administration [Unknown]
